FAERS Safety Report 8177699 (Version 5)
Quarter: 2015Q2

REPORT INFORMATION
  Report Type: Spontaneous
  Country: US (occurrence: US)
  Receive Date: 20111012
  Receipt Date: 20150424
  Transmission Date: 20150821
  Serious: Yes (Hospitalization, Other)
  Sender: FDA-Public Use
  Company Number: US-GLAXOSMITHKLINE-A0947977A

PATIENT
  Age: 42 Year
  Sex: Female
  Weight: 45.5 kg

DRUGS (14)
  1. VANCOMYCIN [Suspect]
     Active Substance: VANCOMYCIN
     Indication: UROSEPSIS
     Route: 065
     Dates: start: 20070808
  2. FENTANYL. [Suspect]
     Active Substance: FENTANYL
     Indication: PRODUCT USED FOR UNKNOWN INDICATION
     Dates: start: 20070811
  3. GENTAMYCIN [Suspect]
     Active Substance: GENTAMICIN
     Dates: start: 200708
  4. ROCEPHIN [Suspect]
     Active Substance: CEFTRIAXONE SODIUM
     Indication: UROSEPSIS
     Dates: start: 20070808
  5. PROPOFOL. [Suspect]
     Active Substance: PROPOFOL
     Indication: PRODUCT USED FOR UNKNOWN INDICATION
     Dates: start: 20070810
  6. PREDNISONE. [Suspect]
     Active Substance: PREDNISONE
     Indication: PRODUCT USED FOR UNKNOWN INDICATION
     Dates: start: 20070808
  7. IMITREX [Suspect]
     Active Substance: SUMATRIPTAN\SUMATRIPTAN SUCCINATE
     Indication: MIGRAINE
     Dosage: AS REQUIRED
     Route: 048
     Dates: start: 20070630
  8. PYRIDOSTIGMINE [Concomitant]
     Active Substance: PYRIDOSTIGMINE
  9. FERROUS SULFATE [Concomitant]
     Active Substance: FERROUS SULFATE\FERROUS SULFATE, DRIED
  10. CIPROFLOXACIN. [Suspect]
     Active Substance: CIPROFLOXACIN
     Indication: URINARY TRACT INFECTION
     Route: 065
     Dates: start: 20070808
  11. CIPROFLOXACIN. [Suspect]
     Active Substance: CIPROFLOXACIN
     Indication: UROSEPSIS
  12. TOBRAMYCIN. [Suspect]
     Active Substance: TOBRAMYCIN
     Indication: UROSEPSIS
     Dates: start: 20070808
  13. LORAZEPAM. [Suspect]
     Active Substance: LORAZEPAM
     Indication: PRODUCT USED FOR UNKNOWN INDICATION
     Dates: start: 20070818
  14. PROPYLTHIOURACIL. [Concomitant]
     Active Substance: PROPYLTHIOURACIL

REACTIONS (41)
  - Urosepsis [Unknown]
  - Fatigue [Recovering/Resolving]
  - Nausea [Recovering/Resolving]
  - Hemiplegia [Unknown]
  - Urinary tract infection [Unknown]
  - Dehydration [Unknown]
  - Headache [Unknown]
  - Impaired driving ability [Unknown]
  - Eye disorder [Unknown]
  - Drug ineffective [Unknown]
  - Myocardial infarction [Unknown]
  - Acute respiratory failure [Unknown]
  - Performance status decreased [Recovering/Resolving]
  - Mental status changes [Unknown]
  - Vocal cord paralysis [Unknown]
  - Cardiomegaly [Unknown]
  - Ejection fraction abnormal [Unknown]
  - Myasthenia gravis [Unknown]
  - Ischaemic cerebral infarction [Unknown]
  - Terminal state [Unknown]
  - Dyspnoea [Recovering/Resolving]
  - Bronchospasm [Unknown]
  - Quality of life decreased [Unknown]
  - Pyrexia [Unknown]
  - Cerebrovascular accident [Unknown]
  - Migraine [Unknown]
  - Cognitive disorder [Unknown]
  - Nosocomial infection [Unknown]
  - Aphonia [Unknown]
  - Overdose [Unknown]
  - Chest pain [Unknown]
  - Pneumothorax [Recovering/Resolving]
  - Altered state of consciousness [Unknown]
  - Depression [Unknown]
  - Decreased activity [Unknown]
  - Lip disorder [Unknown]
  - Drug prescribing error [Unknown]
  - Coma [Unknown]
  - Vomiting [Unknown]
  - Amnesia [Unknown]
  - Drug administration error [Unknown]

NARRATIVE: CASE EVENT DATE: 20070630
